FAERS Safety Report 5708738-0 (Version None)
Quarter: 2008Q2

REPORT INFORMATION
  Report Type: 
  Country: None (occurrence: None)
  Receive Date: 20080417
  Receipt Date: 20080410
  Transmission Date: 20081010
  Serious: Yes (Hospitalization)
  Sender: FDA-Public Use
  Company Number: NL-ABBOTT-08P-114-0444577-00

PATIENT
  Sex: Male
  Weight: 92 kg

DRUGS (7)
  1. HUMIRA [Suspect]
     Indication: RHEUMATOID ARTHRITIS
     Route: 058
     Dates: start: 20060420, end: 20071205
  2. METHOTREXATE PCH TABLET 2.5MG [Concomitant]
     Indication: RHEUMATOID ARTHRITIS
     Route: 048
     Dates: start: 19980101, end: 20071201
  3. PREDNISONE [Concomitant]
     Indication: RHEUMATOID ARTHRITIS
     Route: 048
     Dates: start: 20070101
  4. HYDROXYCHLOROQUINE PHOSPHATE [Concomitant]
     Indication: RHEUMATOID ARTHRITIS
     Route: 048
     Dates: start: 20030101
  5. SOTALOL HCL [Concomitant]
     Indication: CARDIOVASCULAR DISORDER
     Route: 048
  6. AMLODIPINE [Concomitant]
     Indication: CARDIOVASCULAR DISORDER
     Route: 048
  7. ISOSORBIDE MONONITRATE [Concomitant]
     Indication: CARDIOVASCULAR DISORDER
     Route: 048

REACTIONS (2)
  - APPENDICECTOMY [None]
  - COLON CANCER [None]
